FAERS Safety Report 23481714 (Version 2)
Quarter: 2024Q1

REPORT INFORMATION
  Report Type: Report from Study
  Country: AU (occurrence: AU)
  Receive Date: 20240205
  Receipt Date: 20240205
  Transmission Date: 20240409
  Serious: Yes (Death)
  Sender: FDA-Public Use
  Company Number: AU-PFIZER INC-PV202400014242

PATIENT

DRUGS (4)
  1. FLUDARABINE PHOSPHATE [Suspect]
     Active Substance: FLUDARABINE PHOSPHATE
     Indication: Acute myeloid leukaemia
     Dosage: 30 MG/M2/DAY AS A 30 MIN INFUSION ON DAYS 1-5
  2. CYTARABINE [Suspect]
     Active Substance: CYTARABINE
     Indication: Acute myeloid leukaemia
     Dosage: 2 G/M 2 /DAY AS A 4 H INFUSION ON DAYS 1-5
  3. AMSACRINE [Suspect]
     Active Substance: AMSACRINE
     Indication: Acute myeloid leukaemia
     Dosage: 100 MG/M2/DAY AS A 1 H INFUSION ON DAYS 1-3
  4. GRANULOCYTE COLONY-STIMULATING FACTOR NOS [Suspect]
     Active Substance: GRANULOCYTE COLONY-STIMULATING FACTOR NOS
     Indication: Acute myeloid leukaemia
     Dosage: 300 UG/DAY SUBCUTANEOUSLY ON DAYS 0-6
     Route: 058

REACTIONS (3)
  - Respiratory failure [Fatal]
  - Pneumonia fungal [Fatal]
  - Haemoptysis [Fatal]
